FAERS Safety Report 22638160 (Version 1)
Quarter: 2023Q2

REPORT INFORMATION
  Report Type: Spontaneous
  Country: AR (occurrence: AR)
  Receive Date: 20230626
  Receipt Date: 20230626
  Transmission Date: 20230721
  Serious: Yes (Other)
  Sender: FDA-Public Use
  Company Number: AR-PFIZER INC-PV202300110104

PATIENT
  Age: 57 Year
  Sex: Female

DRUGS (1)
  1. AROMASIN [Suspect]
     Active Substance: EXEMESTANE
     Indication: Breast cancer metastatic
     Dosage: 25 MG
     Dates: start: 20230504

REACTIONS (3)
  - Intervertebral disc displacement [Not Recovered/Not Resolved]
  - Nodule [Not Recovered/Not Resolved]
  - Insomnia [Not Recovered/Not Resolved]
